FAERS Safety Report 15596275 (Version 3)
Quarter: 2021Q4

REPORT INFORMATION
  Report Type: Report from Study
  Country: JP (occurrence: JP)
  Receive Date: 20181107
  Receipt Date: 20211214
  Transmission Date: 20220303
  Serious: Yes (Other)
  Sender: FDA-Public Use
  Company Number: PHJP2018JP018591

PATIENT
  Age: 81 Year
  Sex: Male

DRUGS (4)
  1. TAFINLAR [Suspect]
     Active Substance: DABRAFENIB MESYLATE
     Indication: Malignant melanoma stage III
     Dosage: 300 MG, UNK
     Route: 048
     Dates: start: 20171010, end: 20171120
  2. TAFINLAR [Suspect]
     Active Substance: DABRAFENIB MESYLATE
     Dosage: 200 MG, UNK
     Route: 048
     Dates: start: 20171204, end: 20180110
  3. MEKINIST [Suspect]
     Active Substance: TRAMETINIB DIMETHYL SULFOXIDE
     Indication: Malignant melanoma stage III
     Dosage: 2 MG, UNK
     Route: 048
     Dates: start: 20171010, end: 20171120
  4. MEKINIST [Suspect]
     Active Substance: TRAMETINIB DIMETHYL SULFOXIDE
     Dosage: 1.5 MG, UNK
     Route: 048
     Dates: start: 20171204, end: 20180110

REACTIONS (7)
  - Blood creatine phosphokinase increased [Recovering/Resolving]
  - Concomitant disease progression [Recovering/Resolving]
  - Malignant melanoma stage III [Not Recovered/Not Resolved]
  - Malignant neoplasm progression [Not Recovered/Not Resolved]
  - Taste disorder [Recovering/Resolving]
  - Pyrexia [Recovering/Resolving]
  - Parosmia [Recovering/Resolving]

NARRATIVE: CASE EVENT DATE: 20171014
